FAERS Safety Report 24068758 (Version 1)
Quarter: 2024Q3

REPORT INFORMATION
  Report Type: Spontaneous
  Country: US (occurrence: US)
  Receive Date: 20240710
  Receipt Date: 20240710
  Transmission Date: 20241017
  Serious: No
  Sender: ROCHE
  Company Number: US-ROCHE-3543717

PATIENT
  Sex: Male

DRUGS (1)
  1. ROZLYTREK [Suspect]
     Active Substance: ENTRECTINIB
     Indication: Lung neoplasm malignant
     Route: 048
     Dates: start: 202403

REACTIONS (5)
  - Visual impairment [Unknown]
  - Heart rate decreased [Unknown]
  - Ill-defined disorder [Unknown]
  - Pleural effusion [Unknown]
  - Oxygen saturation decreased [Unknown]
